FAERS Safety Report 20329436 (Version 3)
Quarter: 2022Q1

REPORT INFORMATION
  Report Type: Spontaneous
  Country: US (occurrence: US)
  Receive Date: 20220112
  Receipt Date: 20220201
  Transmission Date: 20220423
  Serious: Yes (Hospitalization, Other)
  Sender: FDA-Public Use
  Company Number: US-GILEAD-2022-0564976

PATIENT
  Age: 69 Year
  Sex: Female
  Weight: 52.8 kg

DRUGS (12)
  1. YESCARTA [Suspect]
     Active Substance: AXICABTAGENE CILOLEUCEL
     Indication: Diffuse large B-cell lymphoma
     Dosage: UNK
     Route: 042
     Dates: start: 20211109, end: 20211109
  2. LEVETIRACETAM [Concomitant]
     Active Substance: LEVETIRACETAM
  3. FILGRASTIM [Concomitant]
     Active Substance: FILGRASTIM
  4. VALACYCLOVIR [Concomitant]
     Active Substance: VALACYCLOVIR HYDROCHLORIDE
  5. FLUCONAZOLE [Concomitant]
     Active Substance: FLUCONAZOLE
  6. LEVOFLOXACIN [Concomitant]
     Active Substance: LEVOFLOXACIN
  7. ALLOPURINOL [Concomitant]
     Active Substance: ALLOPURINOL
  8. PANTOPRAZOLE [Concomitant]
     Active Substance: PANTOPRAZOLE
  9. APIXABAN [Concomitant]
     Active Substance: APIXABAN
  10. ASPIRIN [Concomitant]
     Active Substance: ASPIRIN
  11. VANCOMYCIN [Concomitant]
     Active Substance: VANCOMYCIN
  12. ZOSYN [Concomitant]
     Active Substance: PIPERACILLIN SODIUM\TAZOBACTAM SODIUM

REACTIONS (1)
  - Cytokine release syndrome [Recovered/Resolved]

NARRATIVE: CASE EVENT DATE: 20211110
